FAERS Safety Report 7438050-3 (Version None)
Quarter: 2011Q2

REPORT INFORMATION
  Report Type: 
  Country: None (occurrence: None)
  Receive Date: 20110421
  Receipt Date: 20110421
  Transmission Date: 20111010
  Serious: Yes (Other)
  Sender: FDA-Public Use
  Company Number: None

PATIENT
  Age: 75 Year
  Sex: Female
  Weight: 63.5036 kg

DRUGS (2)
  1. RISPERDAL [Suspect]
     Dosage: 37.5 MG EVERY 2 WEEKS IM
     Route: 030
  2. HALDOL [Concomitant]

REACTIONS (4)
  - MOVEMENT DISORDER [None]
  - SPEECH DISORDER [None]
  - GAIT DISTURBANCE [None]
  - INCORRECT DOSE ADMINISTERED [None]
